FAERS Safety Report 15967025 (Version 3)
Quarter: 2019Q2

REPORT INFORMATION
  Report Type: Spontaneous
  Country: JP (occurrence: JP)
  Receive Date: 20190215
  Receipt Date: 20190401
  Transmission Date: 20190711
  Serious: Yes (Other)
  Sender: FDA-Public Use
  Company Number: JP-SA-2019SA041493

PATIENT
  Age: 71 Year
  Sex: Male
  Weight: 67 kg

DRUGS (12)
  1. TAXOTERE [Suspect]
     Active Substance: DOCETAXEL
     Indication: OESOPHAGEAL CARCINOMA
     Dosage: 28 MG/M2, DAYS 1 AND 15
     Route: 041
  2. TAXOTERE [Suspect]
     Active Substance: DOCETAXEL
     Indication: METASTASES TO THE MEDIASTINUM
  3. FLUOROURACIL. [Suspect]
     Active Substance: FLUOROURACIL
     Indication: METASTASES TO LYMPH NODES
  4. NEDAPLATIN [Suspect]
     Active Substance: NEDAPLATIN
     Indication: METASTASES TO LYMPH NODES
  5. TAXOTERE [Suspect]
     Active Substance: DOCETAXEL
     Indication: OESOPHAGEAL SQUAMOUS CELL CARCINOMA
  6. NEDAPLATIN [Suspect]
     Active Substance: NEDAPLATIN
     Indication: OESOPHAGEAL CANCER METASTATIC
     Dosage: 72 MG/M2, Q4W, DAY 1
     Route: 065
  7. FLUOROURACIL. [Suspect]
     Active Substance: FLUOROURACIL
     Indication: OESOPHAGEAL SQUAMOUS CELL CARCINOMA
  8. NEDAPLATIN [Suspect]
     Active Substance: NEDAPLATIN
     Indication: METASTASES TO THE MEDIASTINUM
  9. FLUOROURACIL. [Suspect]
     Active Substance: FLUOROURACIL
     Indication: OESOPHAGEAL CANCER METASTATIC
     Dosage: 640 MG/M2, DAYS 1-5
     Route: 065
  10. FLUOROURACIL. [Suspect]
     Active Substance: FLUOROURACIL
     Indication: METASTASES TO THE MEDIASTINUM
  11. TAXOTERE [Suspect]
     Active Substance: DOCETAXEL
     Indication: METASTASES TO LYMPH NODES
  12. NEDAPLATIN [Suspect]
     Active Substance: NEDAPLATIN
     Indication: OESOPHAGEAL CARCINOMA

REACTIONS (8)
  - Delirium [Unknown]
  - Diarrhoea [Recovered/Resolved]
  - Aspiration [Unknown]
  - Thrombocytopenia [Unknown]
  - Therapeutic response decreased [Unknown]
  - Radial nerve palsy [Unknown]
  - Febrile neutropenia [Recovered/Resolved]
  - Pneumonia [Unknown]
